FAERS Safety Report 18170172 (Version 1)
Quarter: 2020Q3

REPORT INFORMATION
  Report Type: Spontaneous
  Country: US (occurrence: US)
  Receive Date: 20200819
  Receipt Date: 20200819
  Transmission Date: 20201103
  Serious: Yes (Death)
  Sender: FDA-Public Use
  Company Number: US-SYNEX-T202004134

PATIENT
  Age: 40 Year

DRUGS (3)
  1. INOMAX [Suspect]
     Active Substance: NITRIC OXIDE
     Indication: HYPOXIA
     Dosage: 20 PPM  (INHALATION)
     Route: 055
     Dates: start: 20200808, end: 20200808
  2. INOMAX [Suspect]
     Active Substance: NITRIC OXIDE
     Indication: COVID-19
     Dosage: 40 PPM  (INHALATION)
     Route: 055
     Dates: start: 20200809, end: 20200809
  3. INOMAX [Suspect]
     Active Substance: NITRIC OXIDE
     Dosage: 80 PPM  (INHALATION)
     Route: 055
     Dates: start: 20200810, end: 20200811

REACTIONS (3)
  - COVID-19 [Fatal]
  - Product use in unapproved indication [Unknown]
  - Product use issue [Unknown]

NARRATIVE: CASE EVENT DATE: 2020
